FAERS Safety Report 13469028 (Version 1)
Quarter: 2017Q2

REPORT INFORMATION
  Report Type: Spontaneous
  Country: GB (occurrence: GB)
  Receive Date: 20170421
  Receipt Date: 20170421
  Transmission Date: 20170830
  Serious: Yes (Hospitalization, Other)
  Sender: FDA-Public Use
  Company Number: GB-MYLANLABS-2017M1024110

PATIENT

DRUGS (1)
  1. QUETIAPINE. [Suspect]
     Active Substance: QUETIAPINE
     Indication: BIPOLAR DISORDER
     Dosage: 600 MG, UNK
     Route: 048

REACTIONS (6)
  - Poor feeding infant [Recovering/Resolving]
  - Foetal exposure during pregnancy [Recovered/Resolved]
  - Irritability [Recovering/Resolving]
  - Withdrawal syndrome [Unknown]
  - Agitation [Recovering/Resolving]
  - Low birth weight baby [Recovering/Resolving]
